FAERS Safety Report 24273576 (Version 1)
Quarter: 2024Q3

REPORT INFORMATION
  Report Type: Spontaneous
  Country: GT (occurrence: GT)
  Receive Date: 20240902
  Receipt Date: 20240902
  Transmission Date: 20241017
  Serious: No
  Sender: ASTELLAS
  Company Number: GT-PFIZER INC-PV202400098648

PATIENT
  Sex: Male

DRUGS (1)
  1. PADCEV [Suspect]
     Active Substance: ENFORTUMAB VEDOTIN-EJFV
     Indication: Transitional cell carcinoma metastatic
     Dosage: 1.25 MG/KG, CYCLIC (1 CYCLE)(SOLUTION FOR INJECTION)
     Route: 042
     Dates: start: 20240717

REACTIONS (1)
  - Hypercalcaemia [Unknown]
